FAERS Safety Report 7462903-3 (Version None)
Quarter: 2011Q2

REPORT INFORMATION
  Report Type: 
  Country: None (occurrence: None)
  Receive Date: 20110506
  Receipt Date: 20110427
  Transmission Date: 20111010
  Serious: Yes (Other)
  Sender: FDA-Public Use
  Company Number: US-AMGEN-USASP2011022063

PATIENT
  Age: 61 Year
  Sex: Female

DRUGS (1)
  1. ENBREL [Suspect]
     Indication: RHEUMATOID ARTHRITIS
     Dosage: 50 MG, QWK
     Dates: start: 20080820, end: 20110408

REACTIONS (5)
  - HYPOAESTHESIA [None]
  - RHEUMATOID ARTHRITIS [None]
  - PAIN [None]
  - ABASIA [None]
  - MUSCULOSKELETAL STIFFNESS [None]
